FAERS Safety Report 21327573 (Version 1)
Quarter: 2022Q3

REPORT INFORMATION
  Report Type: Spontaneous
  Country: US (occurrence: None)
  Receive Date: 20220913
  Receipt Date: 20220913
  Transmission Date: 20221027
  Serious: Yes (Hospitalization)
  Sender: FDA-Public Use
  Company Number: None

PATIENT
  Age: 8 Year
  Sex: Female
  Weight: 26.1 kg

DRUGS (2)
  1. METHOTREXATE [Suspect]
     Active Substance: METHOTREXATE
     Dates: end: 20220902
  2. VINCRISTINE SULFATE [Suspect]
     Active Substance: VINCRISTINE SULFATE
     Dates: end: 20220812

REACTIONS (10)
  - Heart rate increased [None]
  - Hypotension [None]
  - Respiratory rate increased [None]
  - Oxygen saturation decreased [None]
  - Human rhinovirus test positive [None]
  - Enterovirus test positive [None]
  - Lung opacity [None]
  - Atypical pneumonia [None]
  - Pneumonia aspiration [None]
  - Oedema [None]

NARRATIVE: CASE EVENT DATE: 20220906
